FAERS Safety Report 9324985 (Version 2)
Quarter: 2014Q1

REPORT INFORMATION
  Report Type: Spontaneous
  Country: GB (occurrence: GB)
  Receive Date: 20130603
  Receipt Date: 20140303
  Transmission Date: 20141002
  Serious: Yes (Other)
  Sender: FDA-Public Use
  Company Number: GB-MYLANLABS-2013S1011212

PATIENT
  Age: 8 Year
  Sex: Male

DRUGS (2)
  1. MODAFINIL [Suspect]
     Indication: NARCOLEPSY
  2. A/H1N1 INFLUENZA PANDEMIC VACCINE [Suspect]
     Indication: ANTIVIRAL PROPHYLAXIS
     Dates: start: 20100203, end: 20100203

REACTIONS (15)
  - Aggression [Unknown]
  - Constipation [Unknown]
  - Eye movement disorder [Unknown]
  - Fall [Unknown]
  - Hypotonia [Unknown]
  - Hallucination [Unknown]
  - Psychiatric symptom [Unknown]
  - Fatigue [Unknown]
  - Weight increased [Unknown]
  - Gastrointestinal motility disorder [Unknown]
  - Narcolepsy [Unknown]
  - Cataplexy [Unknown]
  - Wheelchair user [Unknown]
  - Speech rehabilitation [Unknown]
  - Family stress [Unknown]
